FAERS Safety Report 13825574 (Version 1)
Quarter: 2017Q3

REPORT INFORMATION
  Report Type: Spontaneous
  Country: AR (occurrence: AR)
  Receive Date: 20170802
  Receipt Date: 20170802
  Transmission Date: 20171127
  Serious: Yes (Other)
  Sender: FDA-Public Use
  Company Number: AR-MYLANLABS-2017M1048110

PATIENT

DRUGS (4)
  1. CALCITONIN SALMON. [Suspect]
     Active Substance: CALCITONIN SALMON
     Indication: OSTEOPOROTIC FRACTURE
     Dosage: 2 PUFFS DAILY IN EACH NOSTRIL
     Route: 045
     Dates: start: 1989
  2. VITA D                             /00107901/ [Concomitant]
     Indication: PRODUCT USED FOR UNKNOWN INDICATION
     Dosage: UNK
  3. CALCITONINA SANDOZ [Suspect]
     Active Substance: CALCITONIN SALMON
     Indication: OSTEOPOROTIC FRACTURE
     Dosage: UNK
  4. CALCITONIN SALMON. [Suspect]
     Active Substance: CALCITONIN SALMON
     Dosage: 2 PUFFS DAILY IN EACH NOSTRIL
     Route: 045

REACTIONS (6)
  - Syncope [Recovering/Resolving]
  - Fall [Unknown]
  - Rash [Recovering/Resolving]
  - Infarction [Unknown]
  - Bradycardia [Unknown]
  - Vitamin D decreased [Unknown]

NARRATIVE: CASE EVENT DATE: 2009
